FAERS Safety Report 16793983 (Version 1)
Quarter: 2019Q3

REPORT INFORMATION
  Report Type: Report from Study
  Country: NG (occurrence: NG)
  Receive Date: 20190911
  Receipt Date: 20190911
  Transmission Date: 20191005
  Serious: Yes (Other)
  Sender: FDA-Public Use
  Company Number: NG-ROCHE-2407999

PATIENT

DRUGS (5)
  1. DIAZEPAM. [Suspect]
     Active Substance: DIAZEPAM
     Indication: TETANUS NEONATORUM
     Route: 042
  2. PROCAINE BENZYLPENICILLIN [Concomitant]
     Active Substance: PENICILLIN G PROCAINE
     Indication: TETANUS NEONATORUM
     Dosage: 50,000 TO LO0,000UNITS/KG/DAY
     Route: 030
  3. CLOXACILLIN [Concomitant]
     Active Substance: CLOXACILLIN
     Indication: TETANUS NEONATORUM
     Route: 065
  4. PHENOBARBITONE SODIUM [Suspect]
     Active Substance: PHENOBARBITAL SODIUM
     Indication: TETANUS NEONATORUM
     Route: 030
  5. GENTAMICIN. [Concomitant]
     Active Substance: GENTAMICIN
     Indication: TETANUS NEONATORUM
     Dosage: 5 TO 7-5MG/KG/DAY
     Route: 065

REACTIONS (1)
  - Apnoea [Unknown]
